FAERS Safety Report 19229192 (Version 3)
Quarter: 2021Q2

REPORT INFORMATION
  Report Type: Spontaneous
  Country: US (occurrence: US)
  Receive Date: 20210506
  Receipt Date: 20210525
  Transmission Date: 20210717
  Serious: No
  Sender: FDA-Public Use
  Company Number: US-SA-2021SA136069

PATIENT
  Age: 45 Year
  Sex: Female

DRUGS (3)
  1. FORTEO [Concomitant]
     Active Substance: TERIPARATIDE
     Dosage: 20 UG, QD
     Route: 065
  2. BENADRYL [Concomitant]
     Active Substance: DIPHENHYDRAMINE HYDROCHLORIDE
     Dosage: UNK
     Route: 065
  3. LANTUS SOLOSTAR [Suspect]
     Active Substance: INSULIN GLARGINE
     Indication: TYPE 1 DIABETES MELLITUS
     Dosage: 70 IU, QD
     Route: 065
     Dates: start: 2019

REACTIONS (5)
  - Rash macular [Unknown]
  - Injection site pain [Recovering/Resolving]
  - Product quality issue [Unknown]
  - Injection site erythema [Unknown]
  - Injection site oedema [Unknown]

NARRATIVE: CASE EVENT DATE: 2021
